FAERS Safety Report 6895198-X (Version None)
Quarter: 2010Q3

REPORT INFORMATION
  Report Type: 
  Country: None (occurrence: None)
  Receive Date: 20100802
  Receipt Date: 20100720
  Transmission Date: 20110219
  Serious: Yes (Other)
  Sender: FDA-Public Use
  Company Number: PHHY2010BR47619

PATIENT
  Sex: Female

DRUGS (3)
  1. DIOVAN HCT [Suspect]
     Indication: HYPERTENSION
     Dosage: 1 TABLET (80/12.5 MG) DAILY
     Route: 048
     Dates: start: 20100719
  2. PROPRANOLOL [Suspect]
     Dosage: 40 MG, UNK
     Route: 048
     Dates: start: 20100719
  3. BUFERIN [Suspect]
     Dosage: 1 TABLET DAILY
     Route: 048
     Dates: start: 20100719

REACTIONS (2)
  - HEADACHE [None]
  - HYPERTENSION [None]
